FAERS Safety Report 24242367 (Version 1)
Quarter: 2024Q3

REPORT INFORMATION
  Report Type: Spontaneous
  Country: US (occurrence: US)
  Receive Date: 20240823
  Receipt Date: 20240823
  Transmission Date: 20241017
  Serious: No
  Sender: APOTEX
  Company Number: US-APOTEX-2023AP010930

PATIENT
  Sex: Male

DRUGS (4)
  1. TEMOZOLOMIDE [Suspect]
     Active Substance: TEMOZOLOMIDE
     Indication: Isocitrate dehydrogenase gene mutation
     Dosage: UNK
     Route: 065
  2. TEMOZOLOMIDE [Suspect]
     Active Substance: TEMOZOLOMIDE
     Indication: Astrocytoma malignant
  3. PAMIPARIB [Concomitant]
     Active Substance: PAMIPARIB
     Indication: Isocitrate dehydrogenase gene mutation
     Dosage: UNK
     Route: 065
  4. PAMIPARIB [Concomitant]
     Active Substance: PAMIPARIB
     Indication: Astrocytoma malignant

REACTIONS (2)
  - Hypermutation [Unknown]
  - DNA mismatch repair protein gene mutation [Recovered/Resolved]
